FAERS Safety Report 8278367-6 (Version None)
Quarter: 2012Q2

REPORT INFORMATION
  Report Type: 
  Country: None (occurrence: None)
  Receive Date: 20120412
  Receipt Date: 20110809
  Transmission Date: 20120825
  Serious: No
  Sender: FDA-Public Use
  Company Number: US-ASTRAZENECA-2010SE59994

PATIENT
  Age: 939 Month
  Sex: Female
  Weight: 48.1 kg

DRUGS (10)
  1. NEXIUM [Suspect]
     Route: 048
     Dates: start: 20110101
  2. NEXIUM [Suspect]
     Route: 048
     Dates: start: 20101205
  3. NEXIUM [Suspect]
     Indication: GASTROOESOPHAGEAL REFLUX DISEASE
     Route: 048
     Dates: start: 20101205
  4. LEVOTHYROXINE SODIUM [Concomitant]
     Indication: THYROID DISORDER
  5. NEXIUM [Suspect]
     Route: 048
     Dates: start: 20110101
  6. CALCIUM CARBONATE [Concomitant]
  7. XANAX [Concomitant]
  8. RANITIDINE [Concomitant]
  9. ALPRAZOLAM [Concomitant]
  10. PEPCID COMPLETE [Concomitant]

REACTIONS (8)
  - DYSGEUSIA [None]
  - CONSTIPATION [None]
  - DRY MOUTH [None]
  - DRUG INEFFECTIVE [None]
  - NAUSEA [None]
  - OROPHARYNGEAL PAIN [None]
  - AGEUSIA [None]
  - STOMATITIS [None]
